FAERS Safety Report 8839322 (Version 1)
Quarter: 2012Q4

REPORT INFORMATION
  Report Type: Spontaneous
  Country: US (occurrence: None)
  Receive Date: 20121011
  Receipt Date: 20121011
  Transmission Date: 20130627
  Serious: No
  Sender: FDA-Public Use
  Company Number: None

PATIENT
  Sex: Male

DRUGS (2)
  1. DEPAKOTE [Suspect]
     Indication: ANGER
     Dosage: depakote 500mg 59lbs #150
  2. DEPAKOTE [Suspect]
     Indication: ASPERGER^S SYNDROME
     Dosage: depakote 500mg 59lbs #150

REACTIONS (1)
  - Drug ineffective [None]
